FAERS Safety Report 11929295 (Version 1)
Quarter: 2016Q1

REPORT INFORMATION
  Report Type: Spontaneous
  Country: ES (occurrence: ES)
  Receive Date: 20160120
  Receipt Date: 20160120
  Transmission Date: 20160526
  Serious: Yes (Other)
  Sender: FDA-Public Use
  Company Number: ES-ACCORD-037038

PATIENT
  Age: 84 Year
  Sex: Male

DRUGS (2)
  1. BICALUTAMIDE. [Suspect]
     Active Substance: BICALUTAMIDE
     Indication: HORMONE THERAPY
  2. CYPROTERONE/CYPROTERONE ACETATE [Suspect]
     Active Substance: CYPROTERONE
     Indication: HORMONE THERAPY

REACTIONS (3)
  - Hyperhidrosis [Unknown]
  - Quality of life decreased [None]
  - Suicidal ideation [Unknown]
